FAERS Safety Report 18417627 (Version 2)
Quarter: 2021Q1

REPORT INFORMATION
  Report Type: Spontaneous
  Country: US (occurrence: US)
  Receive Date: 20201022
  Receipt Date: 20210122
  Transmission Date: 20210419
  Serious: No
  Sender: FDA-Public Use
  Company Number: 2020SGN02413

PATIENT
  Sex: Female

DRUGS (1)
  1. TUKYSA [Suspect]
     Active Substance: TUCATINIB
     Indication: NEOPLASM MALIGNANT
     Dosage: UNK, BID

REACTIONS (2)
  - Unevaluable event [Unknown]
  - Product dose omission issue [Unknown]
